FAERS Safety Report 7121527-8 (Version None)
Quarter: 2010Q4

REPORT INFORMATION
  Report Type: 
  Country: None (occurrence: None)
  Receive Date: 20101124
  Receipt Date: 20101118
  Transmission Date: 20110411
  Serious: Yes (Other)
  Sender: FDA-Public Use
  Company Number: CH-BAXTER-2010BH028440

PATIENT
  Age: 75 Year
  Sex: Male

DRUGS (2)
  1. IFOSFAMIDE [Suspect]
     Indication: FIBROUS HISTIOCYTOMA
     Route: 065
  2. DOXORUBICIN HCL [Suspect]
     Indication: FIBROUS HISTIOCYTOMA
     Route: 065

REACTIONS (1)
  - PNEUMOTHORAX [None]
